FAERS Safety Report 6492734-2 (Version None)
Quarter: 2009Q4

REPORT INFORMATION
  Report Type: 
  Country: None (occurrence: None)
  Receive Date: 20091211
  Receipt Date: 20091211
  Transmission Date: 20100525
  Serious: Yes (Hospitalization, Disabling)
  Sender: FDA-Public Use
  Company Number: None

PATIENT
  Sex: Female
  Weight: 79.3795 kg

DRUGS (2)
  1. FENTANYL PATCH 50 MCG-09-09 25 MCG FROM THEN UNTIL 1-26-09 [Suspect]
     Indication: PAIN
     Dosage: 50 MCG 3 DAYS ARM; 25 MCG 3 DAYS ARM
     Route: 058
     Dates: start: 20090109, end: 20090119
  2. FENTANYL PATCH 50 MCG-09-09 25 MCG FROM THEN UNTIL 1-26-09 [Suspect]
     Indication: PAIN
     Dosage: 50 MCG 3 DAYS ARM; 25 MCG 3 DAYS ARM
     Route: 058
     Dates: start: 20090119, end: 20090126

REACTIONS (3)
  - DYSSTASIA [None]
  - FEELING ABNORMAL [None]
  - IMMOBILE [None]
